FAERS Safety Report 24531747 (Version 1)
Quarter: 2024Q4

REPORT INFORMATION
  Report Type: Report from Study
  Country: PE (occurrence: PE)
  Receive Date: 20241022
  Receipt Date: 20241022
  Transmission Date: 20250114
  Serious: Yes (Hospitalization, Other)
  Sender: BIOVITRUM
  Company Number: PE-AstraZeneca-CH-00714030A

PATIENT
  Sex: Male

DRUGS (1)
  1. PALIVIZUMAB [Suspect]
     Active Substance: PALIVIZUMAB
     Indication: Antiviral prophylaxis
     Dosage: 15 MICROGRAM/KILOGRAM, QMONTH
     Route: 030
     Dates: start: 20240410

REACTIONS (1)
  - Bronchiolitis [Recovering/Resolving]

NARRATIVE: CASE EVENT DATE: 20240901
